FAERS Safety Report 4489562-6 (Version None)
Quarter: 2004Q4

REPORT INFORMATION
  Report Type: 
  Country: None (occurrence: None)
  Receive Date: 20041026
  Receipt Date: 20041014
  Transmission Date: 20050328
  Serious: Yes (Other)
  Sender: FDA-Public Use
  Company Number: 2004239424GB

PATIENT
  Sex: Male

DRUGS (1)
  1. ZYVOX [Suspect]
     Dosage: 600 MG, BID, IV
     Route: 042
     Dates: start: 20041006, end: 20041008

REACTIONS (2)
  - CARDIAC ARREST [None]
  - RENAL IMPAIRMENT [None]
